FAERS Safety Report 7401445-8 (Version None)
Quarter: 2011Q2

REPORT INFORMATION
  Report Type: 
  Country: None (occurrence: None)
  Receive Date: 20110407
  Receipt Date: 20110225
  Transmission Date: 20111010
  Serious: No
  Sender: FDA-Public Use
  Company Number: A0915412A

PATIENT
  Sex: Female

DRUGS (5)
  1. MISOPROSTOL [Concomitant]
  2. AZILECT [Concomitant]
  3. LEXAPRO [Concomitant]
  4. REQUIP XL [Suspect]
     Indication: PARKINSON'S DISEASE
     Route: 048
  5. COENZYME Q10 [Concomitant]

REACTIONS (2)
  - MUSCLE TWITCHING [None]
  - RESTLESS LEGS SYNDROME [None]
